FAERS Safety Report 7711327-X (Version None)
Quarter: 2011Q3

REPORT INFORMATION
  Report Type: 
  Country: None (occurrence: None)
  Receive Date: 20110817
  Receipt Date: 20110810
  Transmission Date: 20111222
  Serious: Yes (Other)
  Sender: FDA-Public Use
  Company Number: 2011029511

PATIENT
  Age: 56 Year
  Sex: Female
  Weight: 74.8435 kg

DRUGS (10)
  1. LEVOTHYROXINE SODIUM [Concomitant]
  2. ESTRADIOL [Concomitant]
  3. HIZENTRA [Suspect]
  4. SYMBICORT (BUDESONDE W/FORMOTEROL FUMARATE) [Concomitant]
  5. KLOR-CON [Concomitant]
  6. PANTOPRAZOLE [Concomitant]
  7. TYLENOL/CODEINE (GALENIC/PARACETAMOL/CODEINE/) [Concomitant]
  8. HIZENTRA [Suspect]
     Indication: IMMUNODEFICIENCY COMMON VARIABLE
     Dosage: (11 G 1X/WEEK, 2-4 SITES OVER 1-2 HOURS SUBCUTANEOUS) ; (SUBCUTANEOUS) ; (SUBCUTANEOUS)
     Route: 058
     Dates: start: 20110708
  9. HIZENTRA [Suspect]
  10. HCTZ (DYAZIDE) [Concomitant]

REACTIONS (2)
  - RESPIRATORY TRACT INFECTION [None]
  - NAUSEA [None]
